FAERS Safety Report 10931644 (Version 1)
Quarter: 2015Q1

REPORT INFORMATION
  Report Type: Spontaneous
  Country: US (occurrence: US)
  Receive Date: 20150319
  Receipt Date: 20150319
  Transmission Date: 20150721
  Serious: Yes (Death, Congenital Anomaly, Other)
  Sender: FDA-Public Use
  Company Number: US-ELI_LILLY_AND_COMPANY-US201503004003

PATIENT
  Sex: Female

DRUGS (1)
  1. PROZAC [Suspect]
     Active Substance: FLUOXETINE HYDROCHLORIDE
     Dosage: UNK UNK, UNKNOWN
     Route: 064

REACTIONS (6)
  - Cardiomegaly [Unknown]
  - Foetal distress syndrome [Unknown]
  - Right ventricular hypertrophy [Fatal]
  - Umbilical cord around neck [Unknown]
  - Meconium stain [Unknown]
  - Foetal exposure during pregnancy [Unknown]
